FAERS Safety Report 4600828-9 (Version None)
Quarter: 2005Q1

REPORT INFORMATION
  Report Type: 
  Country: None (occurrence: None)
  Receive Date: 20050304
  Receipt Date: 20050223
  Transmission Date: 20050727
  Serious: Yes (Death, Hospitalization)
  Sender: FDA-Public Use
  Company Number: 2005JP000400

PATIENT
  Age: 79 Year
  Sex: Female

DRUGS (9)
  1. TACROLIMUS CAPSULES (TACROLIMUS CAPSULES) [Suspect]
     Indication: MYASTHENIA GRAVIS
     Dosage: 3.00 MG, ORAL
     Route: 048
     Dates: start: 20030128, end: 20041001
  2. PREDNISOLONE [Concomitant]
  3. MESTINON (PYRIDOSTIGMINE BROMIDE) TABLET [Concomitant]
  4. ACINON (NIZATIDINE) CAPSULE [Concomitant]
  5. FLAVITAN (FLAVINE ADENINE DINUCLEOTIDE) PER ORAL [Concomitant]
  6. MYONAL (EPERISONE HYDROCHLORIDE) [Concomitant]
  7. LAC B (LACTOBACILLUS BIFIDUS, LYOPHILIZED) [Concomitant]
  8. ALFAROL (ALFACALCIDOL) [Concomitant]
  9. RANDOL (ISOSORBIDE DINITRATE) TAPE [Concomitant]

REACTIONS (4)
  - GASTROINTESTINAL HAEMORRHAGE [None]
  - MULTI-ORGAN FAILURE [None]
  - PEMPHIGOID [None]
  - PNEUMONIA ASPIRATION [None]
